FAERS Safety Report 9216092 (Version 1)
Quarter: 2013Q2

REPORT INFORMATION
  Report Type: Spontaneous
  Country: SG (occurrence: SG)
  Receive Date: 20130408
  Receipt Date: 20130408
  Transmission Date: 20140414
  Serious: Yes (Other)
  Sender: FDA-Public Use
  Company Number: SG-UCBSA-082376

PATIENT
  Age: 50 Year
  Sex: Male

DRUGS (2)
  1. LEVETIRACETAM [Suspect]
  2. PIPERACILLIN + TAZOBACTAM [Suspect]

REACTIONS (4)
  - Pyrexia [Unknown]
  - Mucosal inflammation [Unknown]
  - Rash [Unknown]
  - Erythema [Unknown]
